FAERS Safety Report 4989073-5 (Version None)
Quarter: 2006Q2

REPORT INFORMATION
  Report Type: 
  Country: None (occurrence: None)
  Receive Date: 20060425
  Receipt Date: 20060414
  Transmission Date: 20061013
  Serious: No
  Sender: FDA-Public Use
  Company Number: 163-21880-06040568

PATIENT
  Age: 69 Year
  Sex: Female

DRUGS (1)
  1. REVLIMID [Suspect]
     Indication: MYELODYSPLASTIC SYNDROME
     Dosage: 5 MG, DAILY, ORAL
     Route: 048
     Dates: start: 20060313, end: 20060315

REACTIONS (4)
  - EPISTAXIS [None]
  - HAEMOGLOBIN DECREASED [None]
  - PLATELET COUNT DECREASED [None]
  - VAGINAL HAEMORRHAGE [None]
